FAERS Safety Report 7753290-1 (Version None)
Quarter: 2011Q3

REPORT INFORMATION
  Report Type: 
  Country: None (occurrence: None)
  Receive Date: 20110915
  Receipt Date: 20110906
  Transmission Date: 20111222
  Serious: Yes (Other)
  Sender: FDA-Public Use
  Company Number: TR-GENENTECH-324113

PATIENT
  Age: 65 Year
  Sex: Female

DRUGS (7)
  1. VALSARTAN [Concomitant]
     Indication: PRODUCT USED FOR UNKNOWN INDICATION
  2. HYDROCHLOROTHIAZIDE [Concomitant]
     Indication: PRODUCT USED FOR UNKNOWN INDICATION
  3. SULFASALAZINE [Concomitant]
     Indication: PRODUCT USED FOR UNKNOWN INDICATION
  4. COLCHICINE [Concomitant]
     Indication: PRODUCT USED FOR UNKNOWN INDICATION
  5. ACTIVASE [Suspect]
     Indication: PULMONARY EMBOLISM
     Dosage: 100 MG, UNK
  6. HEPARIN [Concomitant]
     Indication: PROPHYLAXIS
  7. METHOTREXATE [Concomitant]
     Indication: PRODUCT USED FOR UNKNOWN INDICATION

REACTIONS (2)
  - HAEMODYNAMIC INSTABILITY [None]
  - ANGIOEDEMA [None]
